FAERS Safety Report 6555749-1 (Version None)
Quarter: 2010Q1

REPORT INFORMATION
  Report Type: 
  Country: None (occurrence: None)
  Receive Date: 20100128
  Receipt Date: 20100125
  Transmission Date: 20100710
  Serious: Yes (Death)
  Sender: FDA-Public Use
  Company Number: BR-ASTRAZENECA-2009SE32329

PATIENT
  Sex: Male

DRUGS (2)
  1. ATACAND [Suspect]
     Route: 048
  2. UNSPECIFIED DRUG [Concomitant]

REACTIONS (1)
  - MULTI-ORGAN FAILURE [None]
